FAERS Safety Report 20703710 (Version 3)
Quarter: 2023Q1

REPORT INFORMATION
  Report Type: Spontaneous
  Country: US (occurrence: US)
  Receive Date: 20220413
  Receipt Date: 20230207
  Transmission Date: 20230417
  Serious: Yes (Other)
  Sender: FDA-Public Use
  Company Number: US-BRISTOL-MYERS SQUIBB COMPANY-2022-016770

PATIENT
  Age: 77 Year
  Sex: Female

DRUGS (1)
  1. REVLIMID [Suspect]
     Active Substance: LENALIDOMIDE
     Indication: Plasma cell myeloma
     Dosage: TAKE 1 CAPSULE BY MOUTH EVERY DAY FOR 14 DAYS ON, THEN 14 DAYS OFF
     Route: 048
     Dates: start: 20220311

REACTIONS (5)
  - Neuropathy peripheral [Unknown]
  - Product dose omission issue [Unknown]
  - Off label use [Unknown]
  - Syncope [Recovered/Resolved]
  - Hypotension [Recovered/Resolved]
